FAERS Safety Report 7711802-8 (Version None)
Quarter: 2011Q3

REPORT INFORMATION
  Report Type: 
  Country: None (occurrence: None)
  Receive Date: 20110826
  Receipt Date: 20110811
  Transmission Date: 20111222
  Serious: Yes (Hospitalization)
  Sender: FDA-Public Use
  Company Number: US-UCBSA-037235

PATIENT
  Sex: Female
  Weight: 45.4 kg

DRUGS (27)
  1. TRAMADOL HYDROCHLORIDE [Concomitant]
     Dosage: 100 MG TAB SR 24 HOUR
  2. NEXIUM [Concomitant]
     Indication: CROHN'S DISEASE
  3. FLEXERIL [Concomitant]
     Dosage: AS NEEDED
  4. NUVARING [Concomitant]
     Dosage: 0.12-0.015 MG/24 HR RING,  1 EVERY 3 WEEKS AS DIRECTED, REMOVE FOR 1 WEEK
  5. PURINETHOL [Concomitant]
  6. MULTI-VITAMIN OR [Concomitant]
  7. FOLIC ACID [Concomitant]
  8. ACIDOPHILUS [Concomitant]
     Indication: CROHN'S DISEASE
  9. VENOFER [Concomitant]
     Dosage: 20 MG/ML
     Route: 042
  10. VITAMIN D [Concomitant]
     Dosage: 50000 UNIT CAP
  11. PEPCID [Concomitant]
     Indication: CROHN'S DISEASE
  12. PROVENTIL IN [Concomitant]
     Dosage: 2 SPRAYS AS NEEDED
  13. ASTELIN [Concomitant]
     Dosage: 137 MCG/SPRAY SOLUTION
  14. FENTANYL [Concomitant]
     Dosage: 50 MCG/HR PATCH 72 HR
  15. FERROUS SULFATE TAB [Concomitant]
     Indication: CROHN'S DISEASE
  16. MERCAPTOPURINE [Concomitant]
     Dates: start: 19990101
  17. MAGNESIUM OXIDE [Concomitant]
     Indication: CROHN'S DISEASE
  18. ACIDOPHILUS [Concomitant]
  19. MERCAPTOPURINE [Concomitant]
     Indication: CROHN'S DISEASE
     Dates: start: 19920101, end: 19920101
  20. VITAMIN B-12 [Concomitant]
     Indication: CROHN'S DISEASE
  21. CALCIUM CARBONATE [Concomitant]
     Indication: CROHN'S DISEASE
  22. CALCIUM 500+D [Concomitant]
  23. NARCO [Concomitant]
     Dosage: 10-325 MG AS NEEDED
  24. CIMZIA [Suspect]
     Indication: CROHN'S DISEASE
     Route: 058
     Dates: start: 20110302
  25. SINGULAIR [Concomitant]
     Dosage: EVENING
  26. ZOFRAN [Concomitant]
  27. CLARITIN-D 24 HOUR [Concomitant]

REACTIONS (1)
  - CELLULITIS STAPHYLOCOCCAL [None]
